FAERS Safety Report 7104412-7 (Version None)
Quarter: 2010Q4

REPORT INFORMATION
  Report Type: 
  Country: None (occurrence: None)
  Receive Date: 20101115
  Receipt Date: 20101021
  Transmission Date: 20110411
  Serious: Yes (Hospitalization)
  Sender: FDA-Public Use
  Company Number: AR-AMGEN-ARGCT2010001111

PATIENT

DRUGS (6)
  1. ETANERCEPT [Suspect]
     Indication: SPONDYLOARTHROPATHY
     Dosage: 50 MG, QWK
     Route: 058
     Dates: start: 20081001, end: 20100901
  2. BEROCCA C [Concomitant]
  3. TRILEPTAL [Concomitant]
  4. PREDNISONE [Concomitant]
  5. METHOTREXATE [Concomitant]
  6. PANTOPRAZOLE [Concomitant]

REACTIONS (1)
  - PAIN [None]
